FAERS Safety Report 8058576-1 (Version None)
Quarter: 2012Q1

REPORT INFORMATION
  Report Type: 
  Country: None (occurrence: None)
  Receive Date: 20120120
  Receipt Date: 20120110
  Transmission Date: 20120608
  Serious: Yes (Other)
  Sender: FDA-Public Use
  Company Number: CA-SANOFI-AVENTIS-2012SA001955

PATIENT
  Age: 33 Year
  Sex: Female

DRUGS (2)
  1. LANTUS [Suspect]
     Route: 058
     Dates: start: 20051010
  2. NOVORAPID [Concomitant]
     Route: 058
     Dates: start: 20051010

REACTIONS (2)
  - MATERNAL EXPOSURE DURING PREGNANCY [None]
  - UMBILICAL CORD VASCULAR DISORDER [None]
